FAERS Safety Report 10875631 (Version 1)
Quarter: 2015Q1

REPORT INFORMATION
  Report Type: Spontaneous
  Country: US (occurrence: US)
  Receive Date: 20150227
  Receipt Date: 20150227
  Transmission Date: 20150721
  Serious: No
  Sender: FDA-Public Use
  Company Number: US-AMGEN-USASP2014027671

PATIENT
  Age: 42 Year
  Sex: Female

DRUGS (1)
  1. ENBREL [Suspect]
     Active Substance: ETANERCEPT
     Indication: PSORIATIC ARTHROPATHY
     Dosage: 50 MG, QWK
     Route: 058
     Dates: start: 20140404

REACTIONS (8)
  - Throat irritation [Unknown]
  - Nasal congestion [Unknown]
  - Injection site pruritus [Unknown]
  - Eye pain [Unknown]
  - Injection site reaction [Unknown]
  - Injection site erythema [Unknown]
  - Nasopharyngitis [Unknown]
  - Injection site swelling [Unknown]

NARRATIVE: CASE EVENT DATE: 20140413
